FAERS Safety Report 8043581-1 (Version None)
Quarter: 2012Q1

REPORT INFORMATION
  Report Type: 
  Country: None (occurrence: None)
  Receive Date: 20120112
  Receipt Date: 20120103
  Transmission Date: 20120608
  Serious: Yes (Other)
  Sender: FDA-Public Use
  Company Number: US-ASTRAZENECA-2012SE00448

PATIENT
  Sex: Male

DRUGS (2)
  1. NEXIUM [Suspect]
     Indication: GASTROOESOPHAGEAL REFLUX DISEASE
     Route: 048
  2. NEXIUM [Suspect]
     Dosage: 40 MG ON AND OFF
     Route: 048

REACTIONS (16)
  - AMNESIA [None]
  - ANGIOPATHY [None]
  - NAUSEA [None]
  - UPPER-AIRWAY COUGH SYNDROME [None]
  - COUGH [None]
  - BONE EROSION [None]
  - HEMIANOPIA [None]
  - CALCIUM DEFICIENCY [None]
  - BONE DISORDER [None]
  - BONE PAIN [None]
  - NECK PAIN [None]
  - VOMITING [None]
  - HAEMORRHAGIC STROKE [None]
  - CARDIAC DISORDER [None]
  - EYE DISORDER [None]
  - BACK PAIN [None]
